FAERS Safety Report 12937440 (Version 4)
Quarter: 2017Q2

REPORT INFORMATION
  Report Type: Spontaneous
  Country: ES (occurrence: ES)
  Receive Date: 20161114
  Receipt Date: 20170424
  Transmission Date: 20170830
  Serious: Yes (Death, Other)
  Sender: FDA-Public Use
  Company Number: ES-JNJFOC-20161110919

PATIENT
  Sex: Male
  Weight: 96 kg

DRUGS (2)
  1. IMBRUVICA [Suspect]
     Active Substance: IBRUTINIB
     Indication: CHRONIC LYMPHOCYTIC LEUKAEMIA
     Route: 048
     Dates: start: 20160920
  2. IMBRUVICA [Suspect]
     Active Substance: IBRUTINIB
     Indication: CHRONIC LYMPHOCYTIC LEUKAEMIA
     Route: 048
     Dates: start: 20161018, end: 20161025

REACTIONS (5)
  - Viraemia [Unknown]
  - Stevens-Johnson syndrome [Fatal]
  - Enterococcal bacteraemia [Unknown]
  - Herpes virus infection [Unknown]
  - Cytopenia [Unknown]
